FAERS Safety Report 6496844-5 (Version None)
Quarter: 2009Q4

REPORT INFORMATION
  Report Type: 
  Country: None (occurrence: None)
  Receive Date: 20091125
  Receipt Date: 20090420
  Transmission Date: 20100525
  Serious: Yes (Other)
  Sender: FDA-Public Use
  Company Number: 2009BH006367

PATIENT
  Age: 62 Year
  Sex: Female

DRUGS (24)
  1. DIANEAL [Suspect]
     Indication: PERITONEAL DIALYSIS
     Dosage: 10 L; EVERY DAY; IP
     Route: 033
     Dates: start: 20051101, end: 20090418
  2. ADVAIR DISKUS 100/50 [Concomitant]
  3. ASPIRIN [Concomitant]
  4. COMBIVENT 2 [Concomitant]
  5. HYDRALAZINE [Concomitant]
  6. K-LYTE [Concomitant]
  7. MEGACE [Concomitant]
  8. MICARDIS [Concomitant]
  9. NORVASC [Concomitant]
  10. PREDNISONE [Concomitant]
  11. REGLAN [Concomitant]
  12. ALBUTEROL [Concomitant]
  13. DIATECH 2N [Concomitant]
  14. ALLOPURINOL [Concomitant]
  15. ISOSORBIDE [Concomitant]
  16. HECTOROL [Concomitant]
  17. LIPITOR [Concomitant]
  18. METOPROLOL [Concomitant]
  19. LIPITOR [Concomitant]
  20. METOPROLOL [Concomitant]
  21. NEURONTIN [Concomitant]
  22. PLAVIX [Concomitant]
  23. PROTONIX [Concomitant]
  24. RENAGEL [Concomitant]

REACTIONS (4)
  - ASTHENIA [None]
  - BACK PAIN [None]
  - PERITONEAL DIALYSIS COMPLICATION [None]
  - PERITONITIS [None]
